FAERS Safety Report 7430131-3 (Version None)
Quarter: 2011Q2

REPORT INFORMATION
  Report Type: 
  Country: None (occurrence: None)
  Receive Date: 20110421
  Receipt Date: 20100415
  Transmission Date: 20111010
  Serious: No
  Sender: FDA-Public Use
  Company Number: US-ASTRAZENECA-2010SE17000

PATIENT
  Sex: Female

DRUGS (3)
  1. METOPROLOL SUCCINATE [Suspect]
     Route: 048
  2. ENALAPRIL MALEATE [Concomitant]
  3. METOPROLOL SUCCINATE [Suspect]
     Route: 048
     Dates: start: 20100201, end: 20100416

REACTIONS (1)
  - BLOOD PRESSURE INCREASED [None]
